FAERS Safety Report 16568543 (Version 1)
Quarter: 2019Q3

REPORT INFORMATION
  Report Type: Spontaneous
  Country: TR (occurrence: TR)
  Receive Date: 20190712
  Receipt Date: 20190712
  Transmission Date: 20191004
  Serious: Yes (Death, Other)
  Sender: FDA-Public Use
  Company Number: PHHY2019TR159568

PATIENT
  Age: 7 Month
  Sex: Male

DRUGS (2)
  1. TACROLIMUS. [Suspect]
     Active Substance: TACROLIMUS
     Indication: IMMUNOSUPPRESSANT DRUG THERAPY
  2. TACROLIMUS. [Suspect]
     Active Substance: TACROLIMUS
     Indication: LIVER TRANSPLANT
     Dosage: 0.15 MG/KG, QD
     Route: 065

REACTIONS (4)
  - Abdominal lymphadenopathy [Fatal]
  - Pancytopenia [Unknown]
  - Product use issue [Unknown]
  - Burkitt^s lymphoma [Fatal]
